FAERS Safety Report 8594586-3 (Version None)
Quarter: 2012Q3

REPORT INFORMATION
  Report Type: 
  Country: None (occurrence: None)
  Receive Date: 20120801
  Receipt Date: 20120717
  Transmission Date: 20120928
  Serious: Yes (Other)
  Sender: FDA-Public Use
  Company Number: FK201202055

PATIENT
  Age: 24 Year
  Sex: Male

DRUGS (7)
  1. VINCRISTINE [Suspect]
     Indication: HODGKIN'S DISEASE
     Dosage: 1.4 MG/M2, DAY 8, INTRAVENOUS (NOT OTHERWISE SPECIFIED)
     Route: 042
  2. PROCARBAZINE HYDROCHLORIDE [Suspect]
     Indication: HODGKIN'S DISEASE
     Dosage: 100 MG/M2, DAYS 1-7, ORAL
     Route: 048
  3. BLEOMYCIN SULFATE [Suspect]
     Indication: HODGKIN'S DISEASE
     Dosage: 100000 IU, INTRAVENOUS (NOT OTHERWISE SPECIFIED)
     Route: 042
  4. PREDNISOLONE [Suspect]
     Indication: HODGKIN'S DISEASE
     Dosage: 40 MG/M2, DAYS 1-14, ORAL
     Route: 048
  5. ETOPOSIDE [Suspect]
     Indication: HODGKIN'S DISEASE
     Dosage: 100 MG/M2, STANDARD, INTRAVENOUS (NOT OTHERWISE SPECIFIED) 200 MG/M2, ESCALATED, INTRAVENOUS (NOT OT
     Route: 042
  6. CYCLOPHOSPHAMIDE [Suspect]
     Indication: HODGKIN'S DISEASE
     Dosage: SEE IMAGE
     Route: 042
  7. DOXORUBICIN HCL [Suspect]
     Indication: HODGKIN'S DISEASE
     Dosage: SEE IMAGE
     Route: 042

REACTIONS (1)
  - OSTEONECROSIS [None]
